FAERS Safety Report 9271924 (Version 1)
Quarter: 2013Q2

REPORT INFORMATION
  Report Type: Spontaneous
  Country: US (occurrence: US)
  Receive Date: 20130506
  Receipt Date: 20130506
  Transmission Date: 20140414
  Serious: No
  Sender: FDA-Public Use
  Company Number: US-PFIZER INC-2013140158

PATIENT
  Age: 73 Year
  Sex: Female
  Weight: 63.49 kg

DRUGS (6)
  1. LYRICA [Suspect]
     Indication: NEURALGIA
     Dosage: 100 MG, 1X/DAY
     Route: 048
     Dates: start: 2009
  2. ZEBETA [Concomitant]
     Indication: HYPERTENSION
     Dosage: UNK
  3. IRON [Concomitant]
     Indication: ANAEMIA
     Dosage: UNK
  4. XANAX [Concomitant]
     Indication: SLEEP DISORDER
     Dosage: UNK, 1X/DAY
  5. ZOLOFT [Concomitant]
     Dosage: 25 MG, UNK
  6. OMEPRAZOLE [Concomitant]
     Indication: GASTROOESOPHAGEAL REFLUX DISEASE
     Dosage: UNK, 1X/DAY

REACTIONS (4)
  - Blood cholesterol increased [Unknown]
  - Neuralgia [Unknown]
  - Fall [Unknown]
  - Injury [Unknown]
